FAERS Safety Report 10603247 (Version 4)
Quarter: 2014Q4

REPORT INFORMATION
  Report Type: Spontaneous
  Country: US (occurrence: US)
  Receive Date: 20141124
  Receipt Date: 20141223
  Transmission Date: 20150529
  Serious: Yes (Death, Hospitalization)
  Sender: FDA-Public Use
  Company Number: US-ACTELION-A-US2014-108563

PATIENT
  Age: 77 Year
  Sex: Female

DRUGS (3)
  1. LASIX [Concomitant]
     Active Substance: FUROSEMIDE
  2. TRACLEER [Suspect]
     Active Substance: BOSENTAN\BOSENTAN MONOHYDRATE
     Indication: PULMONARY ARTERIAL HYPERTENSION
     Dosage: 125 MG, BID
     Route: 048
     Dates: start: 2012
  3. VELETRI [Suspect]
     Active Substance: EPOPROSTENOL
     Indication: COR PULMONALE CHRONIC
     Dosage: 13 NG/KG, PER MIN
     Route: 042
     Dates: start: 20130221

REACTIONS (4)
  - Abdominal distension [Fatal]
  - Peripheral swelling [Fatal]
  - Cardiac failure [Fatal]
  - Kidney infection [Unknown]

NARRATIVE: CASE EVENT DATE: 20141109
